FAERS Safety Report 7920903-0 (Version None)
Quarter: 2011Q4

REPORT INFORMATION
  Report Type: 
  Country: None (occurrence: None)
  Receive Date: 20111117
  Receipt Date: 20110929
  Transmission Date: 20120403
  Serious: No
  Sender: FDA-Public Use
  Company Number: US-GLAXOSMITHKLINE-A0946600A

PATIENT
  Age: 50 Year
  Sex: Male
  Weight: 59.5 kg

DRUGS (2)
  1. BEVACIZUMAB [Concomitant]
     Indication: RENAL CELL CARCINOMA
     Dosage: 600MG SEE DOSAGE TEXT
     Route: 042
     Dates: start: 20110831
  2. VOTRIENT [Suspect]
     Indication: RENAL CELL CARCINOMA
     Dosage: 800MG PER DAY
     Route: 048
     Dates: start: 20110901, end: 20110930

REACTIONS (6)
  - ILL-DEFINED DISORDER [None]
  - SCAR [None]
  - RASH PRURITIC [None]
  - RASH [None]
  - SKIN LESION [None]
  - BLISTER [None]
